FAERS Safety Report 10050121 (Version 2)
Quarter: 2014Q2

REPORT INFORMATION
  Report Type: Spontaneous
  Country: AU (occurrence: AU)
  Receive Date: 20140401
  Receipt Date: 20140515
  Transmission Date: 20141212
  Serious: Yes (Other)
  Sender: FDA-Public Use
  Company Number: AU-ABBVIE-14K-008-1216919-00

PATIENT
  Age: 67 Year
  Sex: 0

DRUGS (1)
  1. LUCRIN DEPOT [Suspect]
     Indication: PROSTATE CANCER
     Route: 030
     Dates: start: 20131114

REACTIONS (3)
  - Foot fracture [Unknown]
  - Wrist fracture [Unknown]
  - Fall [Unknown]
